FAERS Safety Report 14290966 (Version 2)
Quarter: 2018Q1

REPORT INFORMATION
  Report Type: Report from Study
  Country: US (occurrence: US)
  Receive Date: 20171215
  Receipt Date: 20180319
  Transmission Date: 20180509
  Serious: Yes (Death, Hospitalization, Other)
  Sender: FDA-Public Use
  Company Number: US-BAYER-2017-191302

PATIENT
  Age: 64 Year
  Sex: Male
  Weight: 117.91 kg

DRUGS (3)
  1. LETAIRIS [Concomitant]
     Active Substance: AMBRISENTAN
     Dosage: UNK
  2. ADEMPAS [Suspect]
     Active Substance: RIOCIGUAT
     Indication: PULMONARY HYPERTENSION
     Dosage: 0.5 MG, TID
     Route: 048
  3. ADEMPAS [Suspect]
     Active Substance: RIOCIGUAT
     Indication: PULMONARY HYPERTENSION
     Dosage: 0.5 MG, TID
     Route: 048
     Dates: start: 20170918

REACTIONS (12)
  - Fluid retention [Unknown]
  - Dyspnoea [Not Recovered/Not Resolved]
  - Portopulmonary hypertension [None]
  - Nasal congestion [None]
  - Hepatitis C [None]
  - Skin ulcer [Not Recovered/Not Resolved]
  - Pericardial effusion [Unknown]
  - Hepatic cirrhosis [None]
  - Death [Fatal]
  - Localised oedema [None]
  - Ascites [Not Recovered/Not Resolved]
  - Hypotension [Unknown]

NARRATIVE: CASE EVENT DATE: 20171204
